FAERS Safety Report 8245218-5 (Version None)
Quarter: 2012Q1

REPORT INFORMATION
  Report Type: 
  Country: None (occurrence: None)
  Receive Date: 20120329
  Receipt Date: 20120326
  Transmission Date: 20120608
  Serious: Yes (Other)
  Sender: FDA-Public Use
  Company Number: PHFR2012GB001937

PATIENT
  Sex: Female

DRUGS (1)
  1. SALAGEN [Suspect]
     Indication: SJOGREN'S SYNDROME
     Dosage: UNK

REACTIONS (1)
  - BLOOD PRESSURE INCREASED [None]
